FAERS Safety Report 7728594-9 (Version None)
Quarter: 2011Q3

REPORT INFORMATION
  Report Type: 
  Country: None (occurrence: None)
  Receive Date: 20110825
  Receipt Date: 20110825
  Transmission Date: 20111222
  Serious: Yes (Hospitalization)
  Sender: FDA-Public Use
  Company Number: None

PATIENT
  Sex: Female
  Weight: 35.8342 kg

DRUGS (6)
  1. ALBUTEROL SULFATE AUTOHALER [Concomitant]
  2. REVATIO [Suspect]
     Dosage: 40 MG PO TID
     Route: 048
     Dates: start: 20110803, end: 20110823
  3. LEVOTHYROXINE SODIUM [Concomitant]
  4. NASACORT [Concomitant]
  5. HUMALOG [Concomitant]
  6. REVATIO [Suspect]
     Dosage: 20 MG PO TID
     Route: 048
     Dates: start: 20110726, end: 20110802

REACTIONS (12)
  - COUGH [None]
  - TACHYCARDIA [None]
  - DECREASED APPETITE [None]
  - FATIGUE [None]
  - CYSTIC FIBROSIS [None]
  - CHEST DISCOMFORT [None]
  - PALLOR [None]
  - RALES [None]
  - CONDITION AGGRAVATED [None]
  - SINUS CONGESTION [None]
  - VOMITING [None]
  - WEIGHT DECREASED [None]
